FAERS Safety Report 10213528 (Version 1)
Quarter: 2014Q2

REPORT INFORMATION
  Report Type: Spontaneous
  Country: US (occurrence: None)
  Receive Date: 20140530
  Receipt Date: 20140530
  Transmission Date: 20141212
  Serious: Yes (Death, Hospitalization)
  Sender: FDA-Public Use
  Company Number: 2014P1004436

PATIENT
  Age: 57 Year
  Sex: Male

DRUGS (2)
  1. HYDROCHLOROTHIAZIDE [Suspect]
     Indication: HYPERTENSION
  2. MOEXIPRIL [Suspect]
     Indication: HYPERTENSION

REACTIONS (7)
  - Neutropenic colitis [None]
  - Septic shock [None]
  - Multi-organ failure [None]
  - Blood lactic acid increased [None]
  - Necrotising colitis [None]
  - Blood creatinine increased [None]
  - Pulse absent [None]
